FAERS Safety Report 23524156 (Version 3)
Quarter: 2024Q1

REPORT INFORMATION
  Report Type: Spontaneous
  Country: US (occurrence: US)
  Receive Date: 20240214
  Receipt Date: 20240311
  Transmission Date: 20240409
  Serious: No
  Sender: FDA-Public Use
  Company Number: US-PFIZER INC-202300049439

PATIENT
  Age: 88 Year
  Sex: Female
  Weight: 42.18 kg

DRUGS (1)
  1. PREMARIN [Suspect]
     Active Substance: ESTROGENS, CONJUGATED
     Dosage: UNK, DAILY (DAILY DOSE WITH UNITS: 1)

REACTIONS (1)
  - Confusional state [Unknown]
